FAERS Safety Report 15209905 (Version 1)
Quarter: 2018Q3

REPORT INFORMATION
  Report Type: Spontaneous
  Country: CN (occurrence: CN)
  Receive Date: 20180727
  Receipt Date: 20180727
  Transmission Date: 20181010
  Serious: Yes (Death, Hospitalization, Other)
  Sender: FDA-Public Use
  Company Number: PHHY2018CN049374

PATIENT
  Age: 1 Year
  Sex: Female

DRUGS (3)
  1. FILGRASTIM [Suspect]
     Active Substance: FILGRASTIM
     Indication: PRODUCT USED FOR UNKNOWN INDICATION
     Dosage: UNK
     Route: 065
  2. IMIPENEM [Suspect]
     Active Substance: IMIPENEM
     Indication: PRODUCT USED FOR UNKNOWN INDICATION
     Dosage: UNK
     Route: 065
  3. INTERLEUKIN?11 [Suspect]
     Active Substance: OPRELVEKIN
     Indication: PRODUCT USED FOR UNKNOWN INDICATION
     Dosage: UNK
     Route: 065

REACTIONS (16)
  - Coma [Unknown]
  - Sepsis [Unknown]
  - Haematemesis [Unknown]
  - Liver injury [Unknown]
  - Therapeutic response decreased [Unknown]
  - Epistaxis [Unknown]
  - Prothrombin time prolonged [None]
  - Activated partial thromboplastin time prolonged [None]
  - Ecchymosis [None]
  - Economic problem [None]
  - Haemodialysis [None]
  - Cardiac arrest [Fatal]
  - Haematuria [None]
  - Renal impairment [Unknown]
  - Platelet transfusion [None]
  - Melaena [Unknown]
